FAERS Safety Report 5229812-1 (Version None)
Quarter: 2007Q1

REPORT INFORMATION
  Report Type: 
  Country: None (occurrence: None)
  Receive Date: 20070206
  Receipt Date: 20061102
  Transmission Date: 20070707
  Serious: No
  Sender: FDA-Public Use
  Company Number: US-GLAXOSMITHKLINE-A0626021A

PATIENT
  Age: 39 Year
  Sex: Male

DRUGS (5)
  1. PAXIL [Suspect]
     Dosage: 120MG PER DAY
     Route: 048
     Dates: start: 19960101
  2. ATENOLOL [Concomitant]
  3. SYNTHROID [Concomitant]
  4. VASERETIC [Concomitant]
  5. XANAX [Concomitant]

REACTIONS (2)
  - OVERDOSE [None]
  - WEIGHT INCREASED [None]
